FAERS Safety Report 17512573 (Version 1)
Quarter: 2020Q1

REPORT INFORMATION
  Report Type: Spontaneous
  Country: US (occurrence: US)
  Receive Date: 20200306
  Receipt Date: 20200306
  Transmission Date: 20200409
  Serious: No
  Sender: FDA-Public Use
  Company Number: US-TEVA-2020-US-1192645

PATIENT

DRUGS (1)
  1. IMATINIB MESYLATE. [Suspect]
     Active Substance: IMATINIB MESYLATE
     Route: 065

REACTIONS (8)
  - Nausea [Unknown]
  - Diarrhoea [Unknown]
  - Lethargy [Unknown]
  - Cyst [Unknown]
  - Product substitution issue [Unknown]
  - Vomiting [Unknown]
  - Depression [Unknown]
  - Diplopia [Unknown]
